FAERS Safety Report 6698106-X (Version None)
Quarter: 2010Q2

REPORT INFORMATION
  Report Type: 
  Country: None (occurrence: None)
  Receive Date: 20100426
  Receipt Date: 20100426
  Transmission Date: 20101027
  Serious: Yes (Disabling)
  Sender: FDA-Public Use
  Company Number: None

PATIENT
  Age: 60 Year
  Sex: Female
  Weight: 110.6777 kg

DRUGS (1)
  1. PROPOFOL [Suspect]
     Indication: ANAESTHESIA PROCEDURE
     Dosage: (35-45 MIN? REALLY UNK)
     Dates: start: 20100412, end: 20100412

REACTIONS (9)
  - ASTHMA [None]
  - CHEST PAIN [None]
  - EYE HAEMORRHAGE [None]
  - MALAISE [None]
  - MULTIPLE ALLERGIES [None]
  - OXYGEN SATURATION DECREASED [None]
  - PETECHIAE [None]
  - PRODUCTIVE COUGH [None]
  - RESPIRATORY DISTRESS [None]
